FAERS Safety Report 4856289-8 (Version None)
Quarter: 2005Q4

REPORT INFORMATION
  Report Type: 
  Country: None (occurrence: None)
  Receive Date: 20051219
  Receipt Date: 20051206
  Transmission Date: 20060501
  Serious: Yes (Hospitalization, Other)
  Sender: FDA-Public Use
  Company Number: US-JNJFOC-20050106638

PATIENT
  Sex: Female
  Weight: 64.18 kg

DRUGS (11)
  1. REMICADE [Suspect]
     Indication: RHEUMATOID ARTHRITIS
     Dosage: TOTAL  OF 5 INFUSIONS
     Route: 042
     Dates: start: 20040621, end: 20041129
  2. METHOTREXATE [Concomitant]
     Route: 065
  3. FOLATE [Concomitant]
     Route: 048
  4. HYDROXYCHLOROQUINE SULFATE [Concomitant]
     Route: 048
  5. FOSAMAX [Concomitant]
     Route: 048
  6. CALCIUM AND VITAMIN D [Concomitant]
     Route: 065
  7. CALCIUM AND VITAMIN D [Concomitant]
     Route: 065
  8. CALCIUM AND VITAMIN D [Concomitant]
     Route: 065
  9. CALCIUM AND VITAMIN D [Concomitant]
     Route: 065
  10. CALCIUM AND VITAMIN D [Concomitant]
     Dosage: DAILY
     Route: 065
  11. PREDNISONE TAB [Concomitant]
     Route: 065

REACTIONS (1)
  - PULMONARY TUBERCULOSIS [None]
